FAERS Safety Report 10635787 (Version 3)
Quarter: 2015Q2

REPORT INFORMATION
  Report Type: Spontaneous
  Country: FR (occurrence: FR)
  Receive Date: 20141205
  Receipt Date: 20150629
  Transmission Date: 20150821
  Serious: Yes (Hospitalization, Other)
  Sender: FDA-Public Use
  Company Number: FR-ELI_LILLY_AND_COMPANY-FR201411010983

PATIENT
  Age: 65 Year
  Sex: Male
  Weight: 79 kg

DRUGS (5)
  1. TEGRETOL [Concomitant]
     Active Substance: CARBAMAZEPINE
     Indication: DYSTHYMIC DISORDER
     Dosage: UNK, UNKNOWN
     Route: 065
     Dates: start: 201308
  2. LEPTICUR [Concomitant]
     Active Substance: TROPATEPINE HYDROCHLORIDE
     Indication: PRODUCT USED FOR UNKNOWN INDICATION
     Dosage: UNK
     Route: 065
  3. FORLAX                             /00754501/ [Concomitant]
     Active Substance: POLYETHYLENE GLYCOL 4000
     Indication: CONSTIPATION
     Dosage: UNK, UNKNOWN
     Route: 065
     Dates: start: 201308
  4. ZYPADHERA [Suspect]
     Active Substance: OLANZAPINE PAMOATE
     Indication: PRODUCT USED FOR UNKNOWN INDICATION
     Dosage: 300 MG, 2/M
     Route: 030
     Dates: start: 201308
  5. TERCIAN                            /00759301/ [Concomitant]
     Active Substance: CYAMEMAZINE
     Indication: ANXIETY
     Dosage: 50 MG, QD
     Route: 065
     Dates: start: 201308

REACTIONS (18)
  - Dysarthria [Recovering/Resolving]
  - Aggression [Recovered/Resolved]
  - Paraesthesia [Recovered/Resolved]
  - Dizziness [Recovered/Resolved]
  - Feeling drunk [Recovered/Resolved]
  - Hypertension [Unknown]
  - C-reactive protein increased [Unknown]
  - Gait disturbance [Recovered/Resolved]
  - Medication error [Recovered/Resolved]
  - Somnolence [Recovering/Resolving]
  - Disorientation [Recovered/Resolved]
  - Vertigo [Recovered/Resolved]
  - Sedation [Recovered/Resolved]
  - Amnesia [Recovered/Resolved]
  - Nausea [Recovered/Resolved]
  - Akathisia [Recovered/Resolved]
  - Agitation [Recovered/Resolved]
  - Confusional state [Recovered/Resolved]

NARRATIVE: CASE EVENT DATE: 20141117
